FAERS Safety Report 10106481 (Version 2)
Quarter: 2014Q3

REPORT INFORMATION
  Report Type: Other
  Country: US (occurrence: US)
  Receive Date: 20140424
  Receipt Date: 20140811
  Transmission Date: 20150326
  Serious: Yes (Hospitalization, Other)
  Sender: FDA-Public Use
  Company Number: US-GSKPPD-2014GSK002330

PATIENT
  Age: 49 Year
  Sex: Male
  Weight: 117.59 kg

DRUGS (3)
  1. LASIX [Concomitant]
     Active Substance: FUROSEMIDE
     Route: 048
  2. ADALAT [Concomitant]
     Active Substance: NIFEDIPINE
     Dosage: BID
  3. AVANDIA [Suspect]
     Active Substance: ROSIGLITAZONE MALEATE
     Indication: DIABETES MELLITUS
     Route: 048
     Dates: start: 2002

REACTIONS (1)
  - Myocardial infarction [Recovered/Resolved]

NARRATIVE: CASE EVENT DATE: 20021224
